FAERS Safety Report 6107866-8 (Version None)
Quarter: 2009Q1

REPORT INFORMATION
  Report Type: 
  Country: None (occurrence: None)
  Receive Date: 20090305
  Receipt Date: 20090305
  Transmission Date: 20090719
  Serious: Yes (Life-Threatening)
  Sender: FDA-Public Use
  Company Number: None

PATIENT
  Age: 70 Year
  Sex: Male
  Weight: 113.8529 kg

DRUGS (1)
  1. SODIUM POLYSTYRENE SUSP. -RL- 240ML [Suspect]
     Indication: BLOOD POTASSIUM INCREASED
     Dosage: 240ML ONE PO
     Route: 048
     Dates: start: 20090209, end: 20090209

REACTIONS (1)
  - BLOOD TEST ABNORMAL [None]
